FAERS Safety Report 9137510 (Version 3)
Quarter: 2013Q3

REPORT INFORMATION
  Report Type: Report from Study
  Country: US (occurrence: US)
  Receive Date: 20130304
  Receipt Date: 20130802
  Transmission Date: 20140515
  Serious: Yes (Death)
  Sender: FDA-Public Use
  Company Number: US-ABBOTT-13P-163-1057503-00

PATIENT
  Age: 77 Year
  Sex: Male
  Weight: 117.59 kg

DRUGS (23)
  1. HUMIRA [Suspect]
     Indication: PSORIASIS
     Route: 058
     Dates: start: 201111, end: 20120830
  2. FERROUS SULFATE [Concomitant]
     Indication: MINERAL SUPPLEMENTATION
     Dates: start: 2003
  3. MAGNESIUM OXIDE [Concomitant]
     Indication: MINERAL SUPPLEMENTATION
     Dates: start: 2003
  4. COLACE [Concomitant]
     Indication: CONSTIPATION
     Dates: start: 2003
  5. FLOMAX [Concomitant]
     Indication: BENIGN PROSTATIC HYPERPLASIA
     Dates: start: 2000
  6. HYDROCHLOROTHIAZIDE [Concomitant]
     Indication: HYPERTENSION
     Dates: start: 2000
  7. ZOLOFT [Concomitant]
     Indication: DEPRESSION
     Dates: start: 201202
  8. COMBIVENT [Concomitant]
     Indication: CHRONIC OBSTRUCTIVE PULMONARY DISEASE
     Dosage: 0.5/2.5MG AS REQUIRED
     Dates: start: 2009
  9. VENTOLIN [Concomitant]
     Indication: CHRONIC OBSTRUCTIVE PULMONARY DISEASE
     Dates: start: 2009
  10. COQ10 [Concomitant]
     Indication: ENZYME SUPPLEMENTATION
     Dates: start: 2011
  11. LOSARTAN [Concomitant]
     Indication: HYPERTENSION
     Dates: start: 2002
  12. COUMADIN [Concomitant]
     Indication: ATRIAL FIBRILLATION
     Dates: start: 1981
  13. COUMADIN [Concomitant]
     Indication: THROMBOSIS PROPHYLAXIS
  14. COUMADIN [Concomitant]
     Indication: PULMONARY EMBOLISM
  15. LASIX [Concomitant]
     Indication: OEDEMA
     Dates: start: 2000
  16. TRAMADOL [Concomitant]
     Indication: RESTLESS LEGS SYNDROME
     Dates: start: 20120215
  17. TRAMADOL [Concomitant]
     Indication: PAIN MANAGEMENT
  18. SYNTHROID [Concomitant]
     Indication: HYPOTHYROIDISM
     Dates: start: 2010
  19. AMBIEN [Concomitant]
     Indication: INSOMNIA
     Dates: start: 201201
  20. KLOR-CON [Concomitant]
     Indication: MINERAL SUPPLEMENTATION
     Dates: start: 2003
  21. SIMVASTATIN [Concomitant]
     Indication: HYPERLIPIDAEMIA
     Dates: start: 2003
  22. REQUIP [Concomitant]
     Indication: RESTLESS LEGS SYNDROME
     Dates: start: 201203
  23. ASPIRIN [Concomitant]
     Indication: PROPHYLAXIS
     Dates: start: 2003

REACTIONS (1)
  - Death [Fatal]
